FAERS Safety Report 5869148-9 (Version None)
Quarter: 2008Q3

REPORT INFORMATION
  Report Type: 
  Country: None (occurrence: None)
  Receive Date: 20080903
  Receipt Date: 20080822
  Transmission Date: 20090109
  Serious: Yes (Death, Other)
  Sender: FDA-Public Use
  Company Number: DE-GENENTECH-267166

PATIENT
  Sex: Female

DRUGS (1)
  1. HERCEPTIN [Suspect]
     Indication: BREAST CANCER METASTATIC
     Dosage: UNKNOWN
     Route: 064

REACTIONS (2)
  - DEATH [None]
  - DRUG EXPOSURE DURING PREGNANCY [None]
